FAERS Safety Report 6709802-X (Version None)
Quarter: 2010Q2

REPORT INFORMATION
  Report Type: 
  Country: None (occurrence: None)
  Receive Date: 20100503
  Receipt Date: 20100503
  Transmission Date: 20101027
  Serious: Yes (Life-Threatening)
  Sender: FDA-Public Use
  Company Number: None

PATIENT
  Sex: Female
  Weight: 7.2576 kg

DRUGS (1)
  1. TYLENOL (CAPLET) [Suspect]
     Indication: TEETHING
     Dosage: 4 DOSES IN 18 HOURS PO
     Route: 048
     Dates: start: 20100427, end: 20100428

REACTIONS (5)
  - COUGH [None]
  - EMOTIONAL DISTRESS [None]
  - LETHARGY [None]
  - MALAISE [None]
  - VOMITING [None]
